FAERS Safety Report 5965976-X (Version None)
Quarter: 2008Q4

REPORT INFORMATION
  Report Type: 
  Country: None (occurrence: None)
  Receive Date: 20081125
  Receipt Date: 20081120
  Transmission Date: 20090506
  Serious: Yes (Hospitalization)
  Sender: FDA-Public Use
  Company Number: BR-ABBOTT-08P-020-0489111-00

PATIENT
  Sex: Female

DRUGS (1)
  1. HUMIRA [Suspect]
     Indication: RHEUMATOID ARTHRITIS
     Route: 058
     Dates: start: 20080401, end: 20080701

REACTIONS (11)
  - APPLICATION SITE ERYTHEMA [None]
  - APPLICATION SITE PRURITUS [None]
  - BLOOD PRESSURE DECREASED [None]
  - CHILLS [None]
  - ERYTHEMA [None]
  - GASTROINTESTINAL INFECTION [None]
  - PRURITUS [None]
  - PYREXIA [None]
  - SYNCOPE [None]
  - URINARY TRACT INFECTION [None]
  - VOMITING [None]
